FAERS Safety Report 7104502-9 (Version None)
Quarter: 2010Q4

REPORT INFORMATION
  Report Type: 
  Country: None (occurrence: None)
  Receive Date: 20101116
  Receipt Date: 20101105
  Transmission Date: 20110411
  Serious: Yes (Hospitalization)
  Sender: FDA-Public Use
  Company Number: US-BIOGENIDEC-2010BI039359

PATIENT
  Sex: Female

DRUGS (4)
  1. TYSABRI [Suspect]
     Indication: MULTIPLE SCLEROSIS
     Route: 042
  2. TYSABRI [Suspect]
     Route: 042
     Dates: start: 20070109, end: 20081008
  3. TYSABRI [Suspect]
     Route: 042
     Dates: start: 20091104
  4. AVONEX [Concomitant]
     Indication: MULTIPLE SCLEROSIS
     Route: 030

REACTIONS (8)
  - BRONCHITIS [None]
  - CALCULUS BLADDER [None]
  - DECUBITUS ULCER [None]
  - FALL [None]
  - LOWER LIMB FRACTURE [None]
  - NEUROPATHY PERIPHERAL [None]
  - RASH [None]
  - URINARY TRACT INFECTION [None]
